FAERS Safety Report 16063103 (Version 5)
Quarter: 2019Q2

REPORT INFORMATION
  Report Type: Spontaneous
  Country: US (occurrence: US)
  Receive Date: 20190312
  Receipt Date: 20190623
  Transmission Date: 20190711
  Serious: No
  Sender: FDA-Public Use
  Company Number: US-SHIRE-US201908144

PATIENT
  Age: 52 Year
  Sex: Female

DRUGS (1)
  1. NATPARA (PARATHYROID HORMONE) [Suspect]
     Active Substance: PARATHYROID HORMONE
     Indication: PRODUCT USED FOR UNKNOWN INDICATION
     Dosage: 50 MICROGRAM, 1X/DAY:QD
     Route: 065
     Dates: start: 20170308

REACTIONS (7)
  - Muscle spasms [Recovered/Resolved]
  - Tetany [Recovering/Resolving]
  - Road traffic accident [Recovered/Resolved]
  - Malabsorption [Not Recovered/Not Resolved]
  - Blood calcium decreased [Recovering/Resolving]
  - Inability to afford medication [Recovered/Resolved]
  - Inappropriate schedule of product administration [Recovering/Resolving]

NARRATIVE: CASE EVENT DATE: 20190204
